FAERS Safety Report 10583755 (Version 1)
Quarter: 2014Q4

REPORT INFORMATION
  Report Type: Spontaneous
  Country: US (occurrence: None)
  Receive Date: 20141112
  Receipt Date: 20141112
  Transmission Date: 20150529
  Serious: Yes (Other)
  Sender: FDA-Public Use
  Company Number: IMP_08078_2014

PATIENT
  Age: 64 Year
  Sex: Female

DRUGS (1)
  1. BACLOFEN. [Suspect]
     Active Substance: BACLOFEN
     Indication: MUSCLE SPASTICITY
     Dosage: INITIALIZING BOLUS INTRATHECAL?
     Route: 037

REACTIONS (2)
  - Confusional state [None]
  - Accidental overdose [None]
